FAERS Safety Report 4678943-3 (Version None)
Quarter: 2005Q2

REPORT INFORMATION
  Report Type: 
  Country: None (occurrence: None)
  Receive Date: 20050525
  Receipt Date: 20050426
  Transmission Date: 20051028
  Serious: No
  Sender: FDA-Public Use
  Company Number: 214082

PATIENT
  Age: 31 Year
  Sex: Male

DRUGS (1)
  1. RAPTIVA [Suspect]
     Indication: PSORIASIS
     Dosage: 0.7 MG/KG, UNK, SUBCUTANEOUS
     Route: 058
     Dates: start: 20050423

REACTIONS (1)
  - MIGRAINE [None]
